FAERS Safety Report 5612884-X (Version None)
Quarter: 2008Q1

REPORT INFORMATION
  Report Type: 
  Country: None (occurrence: None)
  Receive Date: 20080204
  Receipt Date: 20080128
  Transmission Date: 20080703
  Serious: Yes (Other)
  Sender: FDA-Public Use
  Company Number: US-BOEHRINGER INGELHEIM GMBH, GERMANY-2008-BP-01531BP

PATIENT

DRUGS (2)
  1. APTIVUS/RITONAVIR CAPSULES [Suspect]
     Indication: HIV INFECTION
     Route: 048
  2. RALTEGRAVIR [Suspect]
     Indication: HIV INFECTION

REACTIONS (1)
  - LIVER FUNCTION TEST ABNORMAL [None]
